FAERS Safety Report 16752093 (Version 1)
Quarter: 2019Q3

REPORT INFORMATION
  Report Type: Spontaneous
  Country: GB (occurrence: GB)
  Receive Date: 20190828
  Receipt Date: 20190828
  Transmission Date: 20191005
  Serious: Yes (Other)
  Sender: FDA-Public Use
  Company Number: GB-TEVA-2019-GB-1097360

PATIENT
  Age: 74 Year
  Sex: Female
  Weight: 61 kg

DRUGS (4)
  1. ATORVASTATIN [Concomitant]
     Active Substance: ATORVASTATIN
  2. ESCITALOPRAM [Suspect]
     Active Substance: ESCITALOPRAM OXALATE
     Indication: ANXIETY
     Route: 048
     Dates: start: 20190604
  3. BEDRANOL [Concomitant]
     Active Substance: PROPRANOLOL HYDROCHLORIDE
  4. DIAZEPAM. [Concomitant]
     Active Substance: DIAZEPAM

REACTIONS (2)
  - Fibromyalgia [Not Recovered/Not Resolved]
  - Musculoskeletal chest pain [Unknown]

NARRATIVE: CASE EVENT DATE: 20190609
